FAERS Safety Report 9458236 (Version 1)
Quarter: 2013Q3

REPORT INFORMATION
  Report Type: Spontaneous
  Country: US (occurrence: None)
  Receive Date: 20130813
  Receipt Date: 20130813
  Transmission Date: 20140515
  Serious: Yes (Other)
  Sender: FDA-Public Use
  Company Number: None

PATIENT
  Age: 85 Month
  Sex: Female
  Weight: 51.26 kg

DRUGS (1)
  1. FENTANYL [Suspect]
     Dosage: 1 PATCHEVERY 72 HOURS APPLIED AS MEDICATED PATCH TO SKIN
     Route: 062
     Dates: start: 20130809, end: 20130810

REACTIONS (4)
  - Application site vesicles [None]
  - Application site erythema [None]
  - Application site pruritus [None]
  - Dermatitis contact [None]
